FAERS Safety Report 12666820 (Version 1)
Quarter: 2016Q3

REPORT INFORMATION
  Report Type: Other
  Country: GB (occurrence: TW)
  Receive Date: 20160819
  Receipt Date: 20160819
  Transmission Date: 20161109
  Serious: Yes (Hospitalization, Other)
  Sender: FDA-Public Use
  Company Number: TW-CLARIS PHARMASERVICES-1056499

PATIENT
  Age: 70 Year
  Sex: Female

DRUGS (7)
  1. TRAMADOL HYDROCHLORIDE AND ACETAMINOPHEN [Concomitant]
     Active Substance: ACETAMINOPHEN\TRAMADOL HYDROCHLORIDE
  2. FLUCONAZOLE. [Suspect]
     Active Substance: FLUCONAZOLE
     Indication: FUNGAEMIA
     Route: 042
  3. PIPERACILLIN, TAZOBACTAM [Concomitant]
     Active Substance: PIPERACILLIN SODIUM\TAZOBACTAM SODIUM
  4. REGULAR INSULIN [Concomitant]
     Active Substance: INSULIN NOS
  5. ATORVASTATIN [Suspect]
     Active Substance: ATORVASTATIN
     Route: 048
  6. NPH INSULIN [Concomitant]
     Active Substance: INSULIN BEEF
  7. BISOPROLOL [Concomitant]
     Active Substance: BISOPROLOL

REACTIONS (2)
  - Rhabdomyolysis [Recovered/Resolved]
  - Drug interaction [Recovered/Resolved]
